FAERS Safety Report 4424507-6 (Version None)
Quarter: 2004Q3

REPORT INFORMATION
  Report Type: 
  Country: None (occurrence: None)
  Receive Date: 20040812
  Receipt Date: 20040423
  Transmission Date: 20050211
  Serious: Yes (Other)
  Sender: FDA-Public Use
  Company Number: FR-ROCHE-365928

PATIENT
  Age: 15 Year
  Sex: Male
  Weight: 60 kg

DRUGS (3)
  1. ROACCUTANE [Suspect]
     Indication: ACNE
     Route: 048
     Dates: start: 20040123, end: 20040423
  2. ROACCUTANE [Suspect]
     Route: 048
     Dates: start: 20040428
  3. ANAESTHETIC [Concomitant]
     Indication: GENERAL ANAESTHESIA
     Dosage: GENERAL ANAESTHETIC RECEIVED MID APRIL 2004.
     Route: 065
     Dates: start: 20040415, end: 20040415

REACTIONS (2)
  - CYTOLYTIC HEPATITIS [None]
  - DRUG INTERACTION [None]
